FAERS Safety Report 5928613-6 (Version None)
Quarter: 2008Q4

REPORT INFORMATION
  Report Type: 
  Country: None (occurrence: None)
  Receive Date: 20081021
  Receipt Date: 20081006
  Transmission Date: 20090506
  Serious: Yes (Hospitalization, Other)
  Sender: FDA-Public Use
  Company Number: 2008S1012887

PATIENT
  Age: 80 Year
  Sex: Female

DRUGS (8)
  1. PRAVASTATIN [Suspect]
     Indication: HYPERCHOLESTEROLAEMIA
     Dosage: 20 MG; DAILY; ORAL
     Route: 048
  2. AMITRIPTYLINE HYDROCHLORIDE [Suspect]
     Indication: DEPRESSION
     Dosage: 50 MG; DAILY; ORAL
     Route: 048
  3. ASPIRIN [Concomitant]
  4. LEVOTHYROXINE SODIUM [Concomitant]
  5. ATENOLOL [Concomitant]
  6. ARTHROTEC [Concomitant]
  7. WARFARIN SODIUM [Concomitant]
  8. HYDROCORTISONE [Concomitant]

REACTIONS (8)
  - ANOREXIA [None]
  - BLOOD PRESSURE DIASTOLIC DECREASED [None]
  - COLITIS [None]
  - DEHYDRATION [None]
  - DRUG LEVEL INCREASED [None]
  - FIBROSIS [None]
  - PSEUDOPOLYP [None]
  - PULMONARY EMBOLISM [None]
